FAERS Safety Report 17252070 (Version 4)
Quarter: 2020Q1

REPORT INFORMATION
  Report Type: Report from Study
  Country: CA (occurrence: CA)
  Receive Date: 20200109
  Receipt Date: 20200324
  Transmission Date: 20200409
  Serious: Yes (Other)
  Sender: FDA-Public Use
  Company Number: CA-NALPROPION PHARMACEUTICALS INC.-2019-009378

PATIENT

DRUGS (13)
  1. CONTRAVE [Suspect]
     Active Substance: BUPROPION HYDROCHLORIDE\NALTREXONE HYDROCHLORIDE
     Indication: WEIGHT CONTROL
     Dosage: 1 TABLET/DAY, STRENGTH: 90MG/8MG
     Route: 048
     Dates: start: 20191124, end: 20191130
  2. CONTRAVE [Suspect]
     Active Substance: BUPROPION HYDROCHLORIDE\NALTREXONE HYDROCHLORIDE
     Dosage: 3 TABLETS/DAY, STRENGTH: 90MG/8MG
     Route: 048
     Dates: start: 20191208, end: 20191214
  3. CONTRAVE [Suspect]
     Active Substance: BUPROPION HYDROCHLORIDE\NALTREXONE HYDROCHLORIDE
     Dosage: SECOND ATTEMPT, STRENGTH: 90MG/8MG (1 DOSAGE FORMS, 1 IN 1 D)
     Route: 048
     Dates: start: 20191227, end: 20200102
  4. VENTOLIN [Concomitant]
     Active Substance: ALBUTEROL SULFATE
     Indication: ASTHMA
     Dosage: AS NEEDED (INHALATION)
  5. CONTRAVE [Suspect]
     Active Substance: BUPROPION HYDROCHLORIDE\NALTREXONE HYDROCHLORIDE
     Dosage: 4 TABLETS/DAY, STRENGTH: 90MG/8MG
     Route: 048
     Dates: start: 20191215, end: 20191221
  6. ADVAIR HFA [Concomitant]
     Active Substance: FLUTICASONE PROPIONATE\SALMETEROL XINAFOATE
     Indication: ASTHMA
     Dosage: AS NEEDED (INHALATION)
  7. CONTRAVE [Suspect]
     Active Substance: BUPROPION HYDROCHLORIDE\NALTREXONE HYDROCHLORIDE
     Dosage: STRENGTH: 90MG/8MG
     Route: 048
     Dates: start: 20200103, end: 20200109
  8. COVERSYL PLUS                      /06377001/ [Concomitant]
     Indication: HYPERTENSION
     Dosage: DOSAGE 4/1.25 MG (1 IN 1 D)
     Route: 048
  9. PREVACID [Concomitant]
     Active Substance: LANSOPRAZOLE
     Indication: GASTRIC PH DECREASED
     Dosage: 30 MG, 1 IN 1 D
     Route: 048
  10. CONTRAVE [Suspect]
     Active Substance: BUPROPION HYDROCHLORIDE\NALTREXONE HYDROCHLORIDE
     Dosage: 2 TABLETS/DAY, STRENGTH: 90MG/8MG
     Route: 048
     Dates: start: 20191201, end: 20191207
  11. CONTRAVE [Suspect]
     Active Substance: BUPROPION HYDROCHLORIDE\NALTREXONE HYDROCHLORIDE
     Dosage: 2 TABLETS IN THE MORNING, STRENGTH: 90MG/8MG
     Route: 048
     Dates: start: 20191222, end: 20191224
  12. CONTRAVE [Suspect]
     Active Substance: BUPROPION HYDROCHLORIDE\NALTREXONE HYDROCHLORIDE
     Dosage: STRENGTH: 90MG/8MG, STOPPED ON 27/FEB/2020, 2 TABLETS IN THE MORNING AND TWO TABLETS IN THE EVENING
     Route: 048
     Dates: start: 20200117, end: 202002
  13. CONTRAVE [Suspect]
     Active Substance: BUPROPION HYDROCHLORIDE\NALTREXONE HYDROCHLORIDE
     Dosage: STRENGTH: 90MG/8MG
     Route: 048
     Dates: start: 20200110, end: 20200116

REACTIONS (10)
  - Joint dislocation [Unknown]
  - Therapy cessation [Unknown]
  - Therapeutic product effect decreased [Unknown]
  - Ill-defined disorder [Not Recovered/Not Resolved]
  - Ligament rupture [Unknown]
  - Arthralgia [Recovering/Resolving]
  - Vertigo [Not Recovered/Not Resolved]
  - Initial insomnia [Not Recovered/Not Resolved]
  - Intentional product use issue [Unknown]
  - Therapeutic response unexpected [Unknown]

NARRATIVE: CASE EVENT DATE: 201912
